FAERS Safety Report 9409579 (Version 4)
Quarter: 2013Q3

REPORT INFORMATION
  Report Type: Report from Study
  Country: JP (occurrence: JP)
  Receive Date: 20130719
  Receipt Date: 20130919
  Transmission Date: 20140515
  Serious: Yes (Hospitalization, Other)
  Sender: FDA-Public Use
  Company Number: PHHO2013JP009380

PATIENT
  Age: 87 Year
  Sex: Female
  Weight: 57 kg

DRUGS (14)
  1. ACLASTA/ZOLEDRONATE [Suspect]
     Indication: OSTEOPOROSIS
     Dosage: 5.33 MG, UNK
     Route: 041
     Dates: start: 20121106
  2. WADACALCIUM [Concomitant]
     Dosage: 4 DF, UNK
     Route: 048
     Dates: start: 20120907
  3. NORVASC [Concomitant]
     Dosage: 5 MG, UNK
     Route: 048
  4. FELBINAC [Concomitant]
     Route: 062
  5. UREPEARL [Concomitant]
     Route: 061
  6. ZEFNART [Concomitant]
     Route: 061
  7. FERROMIA [Concomitant]
     Dosage: 50 MG, UNK
     Route: 048
     Dates: start: 20130624
  8. AZULENE//SODIUM GUALENATE HYDRATE [Concomitant]
     Dosage: 1 G, UNK
     Route: 048
     Dates: start: 20130624
  9. GASMOTIN [Concomitant]
     Dosage: 0.6 G, UNK
     Route: 048
     Dates: start: 20130624
  10. VITAMEDIN                          /00274301/ [Concomitant]
     Dosage: 50 MG, UNK
     Route: 048
     Dates: start: 20130624
  11. SODIUM PICOSULFATE [Concomitant]
     Dosage: 10 ML, UNK
     Route: 048
     Dates: start: 20130701, end: 20130701
  12. SENNOSIDE [Concomitant]
     Dosage: 36 MG, UNK
     Route: 048
     Dates: start: 20130701, end: 20130701
  13. NIFLEC [Concomitant]
     Dosage: 200 ML, UNK
     Route: 048
     Dates: start: 20130702, end: 20130702
  14. BUSCOPAN [Concomitant]
     Dosage: UNK
     Dates: start: 20130702, end: 20130702

REACTIONS (1)
  - Colon cancer [Recovering/Resolving]
